FAERS Safety Report 14619721 (Version 2)
Quarter: 2018Q3

REPORT INFORMATION
  Report Type: Spontaneous
  Country: ES (occurrence: ES)
  Receive Date: 20180309
  Receipt Date: 20180705
  Transmission Date: 20181010
  Serious: Yes (Hospitalization, Congenital Anomaly, Other)
  Sender: FDA-Public Use
  Company Number: ES-UCBSA-2018008921

PATIENT
  Sex: Male

DRUGS (3)
  1. LUMINAL [Suspect]
     Active Substance: PHENOBARBITAL SODIUM
     Indication: JUVENILE MYOCLONIC EPILEPSY
     Dosage: 75 MG, ONCE DAILY (QD)
     Route: 064
     Dates: start: 201706, end: 20171028
  2. KEPPRA [Suspect]
     Active Substance: LEVETIRACETAM
     Indication: JUVENILE MYOCLONIC EPILEPSY
     Dosage: 3000 MG, DAILY
     Route: 064
     Dates: start: 201706, end: 20171028
  3. DEPAKINE CHRONO [Suspect]
     Active Substance: VALPROATE SODIUM
     Indication: JUVENILE MYOCLONIC EPILEPSY
     Dosage: 1000 MG, DAILY
     Route: 064
     Dates: start: 201706, end: 20171028

REACTIONS (2)
  - Foetal exposure during pregnancy [Unknown]
  - Neural tube defect [Not Recovered/Not Resolved]

NARRATIVE: CASE EVENT DATE: 201706
